FAERS Safety Report 5264403-8 (Version None)
Quarter: 2007Q1

REPORT INFORMATION
  Report Type: 
  Country: None (occurrence: None)
  Receive Date: 20070309
  Receipt Date: 20070227
  Transmission Date: 20070707
  Serious: Yes (Other)
  Sender: FDA-Public Use
  Company Number: 2007US-06163

PATIENT
  Age: 64 Year
  Sex: Female

DRUGS (6)
  1. CEPHALEXIN [Suspect]
     Indication: ECZEMA
     Dosage: 1000 MG, BID, ORAL
     Route: 048
     Dates: start: 20070109, end: 20070112
  2. ACYCLOVIR [Concomitant]
  3. METFORMIN HYDROCHLORIDE (METFORMIN) [Concomitant]
  4. PREDNISONE [Concomitant]
  5. NIACINAMIDE [Concomitant]
  6. TETRACYCLINE [Concomitant]

REACTIONS (6)
  - DYSPNOEA [None]
  - HERPES ZOSTER [None]
  - PEMPHIGOID [None]
  - PRURITUS GENITAL [None]
  - RASH MACULAR [None]
  - RASH PUSTULAR [None]
